FAERS Safety Report 15113378 (Version 1)
Quarter: 2020Q3

REPORT INFORMATION
  Report Type: Spontaneous
  Country: AU (occurrence: AU)
  Receive Date: 20180706
  Receipt Date: 20180706
  Transmission Date: 20201105
  Serious: Yes (Other)
  Sender: FDA-Public Use
  Company Number: AU-ROCHE-2150137

PATIENT
  Sex: Male

DRUGS (2)
  1. ALECTINIB. [Suspect]
     Active Substance: ALECTINIB
     Indication: ADENOCARCINOMA
  2. ALECTINIB. [Suspect]
     Active Substance: ALECTINIB
     Indication: NON-SMALL CELL LUNG CANCER METASTATIC
     Route: 065

REACTIONS (2)
  - Intracranial tumour haemorrhage [Unknown]
  - Drug ineffective [Unknown]
